FAERS Safety Report 6819464-9 (Version None)
Quarter: 2010Q3

REPORT INFORMATION
  Report Type: 
  Country: None (occurrence: None)
  Receive Date: 20100707
  Receipt Date: 20100625
  Transmission Date: 20110219
  Serious: Yes (Death, Other)
  Sender: FDA-Public Use
  Company Number: US-PFIZER INC-2010070983

PATIENT
  Sex: Female
  Weight: 57.14 kg

DRUGS (9)
  1. MORPHINE SULFATE [Suspect]
     Indication: DRUG ABUSE
     Route: 065
  2. XANAX [Suspect]
     Dosage: UNK
     Route: 065
  3. SERTRALINE HCL [Suspect]
     Dosage: UNK
     Route: 065
  4. COCAINE [Suspect]
     Indication: DRUG ABUSE
     Dosage: UNK
     Route: 065
  5. VICODIN [Suspect]
     Indication: DRUG ABUSE
     Dosage: UNK
     Route: 065
  6. CARISOPRODOL [Suspect]
     Route: 065
  7. MEPROBAMATE [Suspect]
     Indication: PRODUCT USED FOR UNKNOWN INDICATION
     Route: 065
  8. HEROIN [Suspect]
     Indication: DRUG ABUSE
     Route: 065
  9. DOXYCYCLINE [Concomitant]

REACTIONS (2)
  - DROWNING [None]
  - SUBSTANCE ABUSE [None]
